FAERS Safety Report 18133802 (Version 1)
Quarter: 2020Q3

REPORT INFORMATION
  Report Type: Spontaneous
  Country: JP (occurrence: JP)
  Receive Date: 20200811
  Receipt Date: 20200811
  Transmission Date: 20201103
  Serious: Yes (Other)
  Sender: FDA-Public Use
  Company Number: JP-PFIZER INC-2020300291

PATIENT
  Age: 49 Year
  Sex: Male

DRUGS (3)
  1. PACLITAXEL. [Suspect]
     Active Substance: PACLITAXEL
     Indication: THYMIC CANCER METASTATIC
     Dosage: UNK, CYCLIC
     Dates: start: 2015
  2. AMRUBICIN [Suspect]
     Active Substance: AMRUBICIN
     Indication: THYMIC CANCER METASTATIC
     Dosage: UNK, CYCLIC (54 CYCLES)
     Dates: start: 201608, end: 201911
  3. CARBOPLATIN. [Suspect]
     Active Substance: CARBOPLATIN
     Indication: THYMIC CANCER METASTATIC
     Dosage: UNK, CYCLIC (6 CYCLES)
     Dates: start: 2015

REACTIONS (2)
  - Non-Hodgkin^s lymphoma [Recovering/Resolving]
  - Second primary malignancy [Recovering/Resolving]
